FAERS Safety Report 4297735-0 (Version None)
Quarter: 2004Q1

REPORT INFORMATION
  Report Type: 
  Country: None (occurrence: None)
  Receive Date: 20040213
  Receipt Date: 20040204
  Transmission Date: 20041129
  Serious: Yes (Hospitalization, Other)
  Sender: FDA-Public Use
  Company Number: 2004-02-0203

PATIENT
  Age: 60 Year
  Sex: Female

DRUGS (6)
  1. INTRON A [Suspect]
     Indication: METASTATIC RENAL CELL CARCINOMA
     Dosage: SEE IMAGE
     Route: 058
     Dates: start: 20040202, end: 20040202
  2. INTRON A [Suspect]
     Indication: METASTATIC RENAL CELL CARCINOMA
     Dosage: SEE IMAGE
     Route: 058
     Dates: start: 20040206, end: 20040206
  3. CITALOPRAM [Suspect]
     Indication: DEPRESSION
     Dosage: 20 MG
     Dates: start: 20040202
  4. CITALOPRAM [Suspect]
     Indication: PROPHYLAXIS
     Dosage: 20 MG
     Dates: start: 20040202
  5. ACETAMINOPHEN [Concomitant]
  6. HERBAL MEDICATION [Concomitant]

REACTIONS (7)
  - BLISTER [None]
  - CONFUSIONAL STATE [None]
  - MEMORY IMPAIRMENT [None]
  - RASH ERYTHEMATOUS [None]
  - RASH PRURITIC [None]
  - SWELLING FACE [None]
  - VOMITING [None]
